FAERS Safety Report 8535107 (Version 8)
Quarter: 2015Q2

REPORT INFORMATION
  Report Type: Report from Study
  Country: DE (occurrence: DE)
  Receive Date: 20120427
  Receipt Date: 20150514
  Transmission Date: 20150821
  Serious: Yes (Hospitalization)
  Sender: FDA-Public Use
  Company Number: DE-ROCHE-1063634

PATIENT
  Age: 74 Year
  Sex: Male
  Weight: 97.5 kg

DRUGS (7)
  1. VEMURAFENIB [Suspect]
     Active Substance: VEMURAFENIB
     Route: 048
     Dates: start: 20120416
  2. SIMVASTATIN. [Concomitant]
     Active Substance: SIMVASTATIN
     Route: 065
     Dates: start: 2011, end: 20130202
  3. TAMSULOSIN [Concomitant]
     Active Substance: TAMSULOSIN
  4. BETAHISTINE [Concomitant]
     Active Substance: BETAHISTINE
  5. VEMURAFENIB [Suspect]
     Active Substance: VEMURAFENIB
     Indication: METASTATIC MALIGNANT MELANOMA
     Dosage: DATE OF LAST DOSE PRIOR TO SAE: 13/APR/2012
     Route: 048
     Dates: start: 20120320, end: 20120414
  6. GELOMYRTOL [Concomitant]
     Dosage: 3/CAPS
     Route: 065
  7. ASPIRIN. [Concomitant]
     Active Substance: ASPIRIN

REACTIONS (1)
  - Angioedema [Recovered/Resolved]

NARRATIVE: CASE EVENT DATE: 20120413
